FAERS Safety Report 8408012-8 (Version None)
Quarter: 2012Q2

REPORT INFORMATION
  Report Type: 
  Country: None (occurrence: None)
  Receive Date: 20120604
  Receipt Date: 20120525
  Transmission Date: 20120825
  Serious: Yes (Hospitalization)
  Sender: FDA-Public Use
  Company Number: JP-MERCK-1102USA03334

PATIENT
  Age: 74 Year
  Sex: Male

DRUGS (13)
  1. CARBIDOPA AND LEVODOPA [Concomitant]
     Indication: PARKINSONISM
     Route: 048
     Dates: end: 20110216
  2. AKINETON TABLETS [Concomitant]
     Route: 048
     Dates: end: 20110216
  3. URIEF [Concomitant]
     Indication: BENIGN PROSTATIC HYPERPLASIA
     Route: 048
     Dates: end: 20110216
  4. FOSAMAX [Suspect]
     Indication: OSTEOPOROSIS
     Route: 048
     Dates: end: 20110216
  5. RABEPRAZOLE SODIUM [Concomitant]
     Indication: GASTROOESOPHAGEAL REFLUX DISEASE
     Route: 048
     Dates: end: 20110216
  6. DUTASTERIDE [Concomitant]
     Indication: BENIGN PROSTATIC HYPERPLASIA
     Route: 048
     Dates: end: 20110216
  7. MAOREAD [Concomitant]
     Indication: HYPERTENSION
     Route: 048
     Dates: end: 20110216
  8. SEDEKOPAN [Concomitant]
     Indication: INSOMNIA
     Route: 048
     Dates: end: 20110216
  9. MICAMLO [Concomitant]
     Indication: HYPERTENSION
     Route: 048
     Dates: end: 20110216
  10. SELEGILINE HYDROCHLORIDE [Concomitant]
     Indication: PARKINSONISM
     Route: 048
     Dates: end: 20110216
  11. ASPIRIN [Suspect]
     Indication: CEREBRAL INFARCTION
     Route: 048
     Dates: end: 20110216
  12. FLUVASTATIN [Concomitant]
     Indication: LIPID METABOLISM DISORDER
     Route: 048
     Dates: end: 20110216
  13. ZOLPIDEM [Concomitant]
     Indication: INSOMNIA
     Route: 048
     Dates: end: 20110216

REACTIONS (3)
  - HAEMORRHAGIC ANAEMIA [None]
  - NECROTISING OESOPHAGITIS [None]
  - DUODENAL ULCER [None]
